FAERS Safety Report 10183308 (Version 1)
Quarter: 2014Q2

REPORT INFORMATION
  Report Type: Spontaneous
  Country: AU (occurrence: None)
  Receive Date: 20140516
  Receipt Date: 20140516
  Transmission Date: 20141212
  Serious: Yes (Hospitalization)
  Sender: FDA-Public Use
  Company Number: 2014-19515

PATIENT
  Age: 88 Year
  Sex: Male

DRUGS (2)
  1. EYLEA (AFLIBERCEPT) INJECTION)AFLIBERCEPT) [Suspect]
     Indication: PRODUCT USED FOR UNKNOWN INDICATION
     Dates: start: 20140305, end: 20140305
  2. WARFARIN (WARFARIN) [Suspect]
     Indication: PRODUCT USED FOR UNKNOWN INDICATION

REACTIONS (1)
  - Rash [None]
